FAERS Safety Report 25926450 (Version 1)
Quarter: 2025Q4

REPORT INFORMATION
  Report Type: Spontaneous
  Country: EU (occurrence: EU)
  Receive Date: 20251015
  Receipt Date: 20251015
  Transmission Date: 20260117
  Serious: Yes (Other)
  Sender: MYLAN
  Company Number: None

PATIENT
  Age: 16 Year
  Sex: Female
  Weight: 67 kg

DRUGS (4)
  1. TRAMADOL [Suspect]
     Active Substance: TRAMADOL
     Indication: Product used for unknown indication
     Dosage: 10 DOSAGE FORM (10 TABLETS OF 100 MG LP)
     Dates: start: 20250522, end: 20250522
  2. TRAMADOL [Suspect]
     Active Substance: TRAMADOL
     Dosage: 10 DOSAGE FORM (10 TABLETS OF 100 MG LP)
     Route: 048
     Dates: start: 20250522, end: 20250522
  3. TRAMADOL [Suspect]
     Active Substance: TRAMADOL
     Dosage: 10 DOSAGE FORM (10 TABLETS OF 100 MG LP)
     Route: 048
     Dates: start: 20250522, end: 20250522
  4. TRAMADOL [Suspect]
     Active Substance: TRAMADOL
     Dosage: 10 DOSAGE FORM (10 TABLETS OF 100 MG LP)
     Dates: start: 20250522, end: 20250522

REACTIONS (5)
  - Drug use disorder [Unknown]
  - Vomiting [Recovered/Resolved]
  - Abdominal pain [Recovered/Resolved]
  - Somnolence [Recovered/Resolved]
  - Vertigo [Recovered/Resolved]

NARRATIVE: CASE EVENT DATE: 20250522
